FAERS Safety Report 24449767 (Version 1)
Quarter: 2024Q4

REPORT INFORMATION
  Report Type: Report from Study
  Country: PL (occurrence: PL)
  Receive Date: 20241017
  Receipt Date: 20241017
  Transmission Date: 20250115
  Serious: Yes (Other)
  Sender: JOHNSON AND JOHNSON
  Company Number: PL-JNJFOC-20241025897

PATIENT

DRUGS (2)
  1. REMICADE [Suspect]
     Active Substance: INFLIXIMAB
     Indication: Crohn^s disease
     Route: 041
  2. REMICADE [Suspect]
     Active Substance: INFLIXIMAB
     Indication: Colitis ulcerative

REACTIONS (19)
  - Malignant melanoma [Unknown]
  - Lupus-like syndrome [Unknown]
  - Erythema multiforme [Unknown]
  - Pyoderma gangrenosum [Unknown]
  - Erythema nodosum [Unknown]
  - Hidradenitis [Unknown]
  - Phlebitis [Unknown]
  - Vitiligo [Unknown]
  - Xerosis [Unknown]
  - Psoriasis [Unknown]
  - Vasculitis [Unknown]
  - Hypersensitivity [Unknown]
  - Skin infection [Unknown]
  - Infusion related reaction [Unknown]
  - Urticaria [Unknown]
  - Alopecia [Unknown]
  - Eczema [Unknown]
  - Injection site reaction [Unknown]
  - Drug ineffective [Unknown]
